FAERS Safety Report 15431713 (Version 2)
Quarter: 2018Q4

REPORT INFORMATION
  Report Type: Report from Study
  Country: None (occurrence: US)
  Receive Date: 20180926
  Receipt Date: 20181112
  Transmission Date: 20190204
  Serious: Yes (Hospitalization, Other)
  Sender: FDA-Public Use
  Company Number: US-ABBVIE-18K-163-2496178-00

PATIENT
  Age: 39 Year
  Sex: Female
  Weight: 52.21 kg

DRUGS (2)
  1. HUMIRA [Suspect]
     Active Substance: ADALIMUMAB
     Route: 058
     Dates: start: 201808
  2. HUMIRA [Suspect]
     Active Substance: ADALIMUMAB
     Indication: CROHN^S DISEASE
     Route: 058
     Dates: start: 2016, end: 2016

REACTIONS (5)
  - Abscess intestinal [Recovered/Resolved]
  - Impaired healing [Unknown]
  - Postoperative wound infection [Unknown]
  - Wound dehiscence [Unknown]
  - Small intestine carcinoma stage II [Recovered/Resolved]

NARRATIVE: CASE EVENT DATE: 2016
